FAERS Safety Report 17098969 (Version 2)
Quarter: 2019Q4

REPORT INFORMATION
  Report Type: Report from Study
  Country: CO (occurrence: CO)
  Receive Date: 20191202
  Receipt Date: 20191205
  Transmission Date: 20200122
  Serious: Yes (Death, Hospitalization)
  Sender: FDA-Public Use
  Company Number: CO-ACTELION-A-CH2019-198912

PATIENT
  Age: 58 Year
  Sex: Female
  Weight: 39 kg

DRUGS (2)
  1. SILDENAFIL. [Concomitant]
     Active Substance: SILDENAFIL
     Dosage: UNK
     Route: 048
     Dates: end: 201912
  2. OPSUMIT [Suspect]
     Active Substance: MACITENTAN
     Indication: PULMONARY ARTERIAL HYPERTENSION
     Dosage: 10 MG, QD
     Route: 048
     Dates: start: 20191106, end: 201912

REACTIONS (11)
  - Cough [Fatal]
  - Pyrexia [Fatal]
  - Malaise [Fatal]
  - Musculoskeletal discomfort [Fatal]
  - Headache [Fatal]
  - Pain [Fatal]
  - Nausea [Fatal]
  - Dengue fever [Fatal]
  - Myocardial infarction [Fatal]
  - Secretion discharge [Fatal]
  - Platelet count decreased [Fatal]

NARRATIVE: CASE EVENT DATE: 20191114
